FAERS Safety Report 12327710 (Version 2)
Quarter: 2016Q2

REPORT INFORMATION
  Report Type: Spontaneous
  Country: DE (occurrence: DE)
  Receive Date: 20160503
  Receipt Date: 20160608
  Transmission Date: 20160815
  Serious: Yes (Life-Threatening, Other)
  Sender: FDA-Public Use
  Company Number: DE-PFIZER INC-2016231211

PATIENT
  Age: 57 Year
  Sex: Female
  Weight: 58 kg

DRUGS (4)
  1. BISOPROLOL [Concomitant]
     Active Substance: BISOPROLOL
     Indication: CARDIAC DISORDER
     Dosage: 5 MG, DAILY
     Route: 048
     Dates: start: 201604
  2. TOREM [Concomitant]
     Active Substance: TORSEMIDE
     Indication: CARDIAC DISORDER
     Dosage: 10 MG, DAILY
     Route: 048
     Dates: start: 201604
  3. PANTOZOL [Concomitant]
     Active Substance: PANTOPRAZOLE SODIUM
     Indication: PROPHYLAXIS AGAINST GASTROINTESTINAL ULCER
     Dosage: 40 MG, DAILY
     Route: 048
     Dates: start: 201604
  4. XALKORI [Suspect]
     Active Substance: CRIZOTINIB
     Indication: NON-SMALL CELL LUNG CANCER
     Dosage: 250 MG, 2X/DAY
     Route: 048

REACTIONS (9)
  - Pleural effusion [Recovering/Resolving]
  - Disease progression [Unknown]
  - Pericardial effusion [Recovering/Resolving]
  - Long QT syndrome [Unknown]
  - Hypokalaemia [Unknown]
  - Pneumonitis [Recovering/Resolving]
  - Non-small cell lung cancer [Unknown]
  - Hepatic enzyme increased [Unknown]
  - Ventricular fibrillation [Recovered/Resolved]

NARRATIVE: CASE EVENT DATE: 20160416
